FAERS Safety Report 8219528-1 (Version None)
Quarter: 2012Q1

REPORT INFORMATION
  Report Type: 
  Country: None (occurrence: None)
  Receive Date: 20120319
  Receipt Date: 20120312
  Transmission Date: 20120608
  Serious: Yes (Other)
  Sender: FDA-Public Use
  Company Number: PHHY2012KR021803

PATIENT
  Age: 71 Year
  Sex: Female

DRUGS (2)
  1. WARFARIN SODIUM [Suspect]
     Indication: ATRIAL FIBRILLATION
  2. TAMIFLU [Interacting]
     Dosage: 150 MG, QD

REACTIONS (6)
  - RHINORRHOEA [None]
  - INTERNATIONAL NORMALISED RATIO INCREASED [None]
  - UPPER RESPIRATORY TRACT INFECTION [None]
  - DRUG INTERACTION [None]
  - COUGH [None]
  - PYREXIA [None]
